FAERS Safety Report 10845546 (Version 1)
Quarter: 2015Q1

REPORT INFORMATION
  Report Type: Spontaneous
  Country: US (occurrence: US)
  Receive Date: 20150220
  Receipt Date: 20150220
  Transmission Date: 20150721
  Serious: No
  Sender: FDA-Public Use
  Company Number: US-ABBVIE-14P-163-1312170-00

PATIENT

DRUGS (3)
  1. HUMIRA [Suspect]
     Active Substance: ADALIMUMAB
     Indication: CROHN^S DISEASE
  2. HUMIRA [Suspect]
     Active Substance: ADALIMUMAB
     Indication: COLITIS ULCERATIVE
     Route: 065
  3. HUMIRA [Suspect]
     Active Substance: ADALIMUMAB
     Indication: PROCTITIS

REACTIONS (8)
  - Respiratory tract congestion [Not Recovered/Not Resolved]
  - Choking [Not Recovered/Not Resolved]
  - Increased viscosity of bronchial secretion [Unknown]
  - Cough [Not Recovered/Not Resolved]
  - Anxiety [Unknown]
  - Sputum discoloured [Unknown]
  - Haemoptysis [Unknown]
  - Stress [Unknown]

NARRATIVE: CASE EVENT DATE: 2014
